FAERS Safety Report 7436112-8 (Version None)
Quarter: 2011Q2

REPORT INFORMATION
  Report Type: 
  Country: None (occurrence: None)
  Receive Date: 20110425
  Receipt Date: 20110412
  Transmission Date: 20111010
  Serious: Yes (Life-Threatening, Other)
  Sender: FDA-Public Use
  Company Number: JP-CELGENEUS-087-21880-11010913

PATIENT
  Sex: Male
  Weight: 35 kg

DRUGS (7)
  1. SIGMART [Concomitant]
     Indication: ANGINA PECTORIS
     Dosage: 45 MILLIGRAM
     Route: 048
     Dates: start: 20101110
  2. FRANDOL [Concomitant]
     Indication: ANGINA PECTORIS
     Dosage: 1 SHEET
     Route: 065
     Dates: start: 20101110
  3. GLAKAY [Concomitant]
     Indication: OSTEOPOROSIS
     Dosage: 45 MILLIGRAM
     Route: 048
     Dates: start: 20101110
  4. REVLIMID [Suspect]
     Indication: MULTIPLE MYELOMA
     Dosage: 10 MILLIGRAM
     Route: 048
     Dates: start: 20101110, end: 20101119
  5. GASTER D [Concomitant]
     Indication: PROPHYLAXIS
     Dosage: 40 MILLIGRAM
     Route: 048
     Dates: start: 20101110
  6. LENADEX [Suspect]
     Indication: MULTIPLE MYELOMA
     Dosage: 20 MILLIGRAM
     Route: 048
     Dates: start: 20101110, end: 20101118
  7. BUFFERIN [Concomitant]
     Indication: PROPHYLAXIS
     Dosage: 81 MILLIGRAM
     Route: 048
     Dates: start: 20101110

REACTIONS (2)
  - DELIRIUM [None]
  - CONVULSION [None]
